FAERS Safety Report 13586329 (Version 1)
Quarter: 2017Q2

REPORT INFORMATION
  Report Type: Spontaneous
  Country: SE (occurrence: SE)
  Receive Date: 20170526
  Receipt Date: 20170526
  Transmission Date: 20170830
  Serious: Yes (Hospitalization)
  Sender: FDA-Public Use
  Company Number: SE-PFIZER INC-2017230887

PATIENT
  Age: 37 Year
  Sex: Male

DRUGS (8)
  1. DIKLOFENAK MYLAN [Concomitant]
  2. ATARAX /00058403/ [Concomitant]
     Active Substance: HYDROXYZINE PAMOATE
  3. MIRTAZAPIN ACTAVIS [Concomitant]
     Active Substance: MIRTAZAPINE
  4. XANOR [Suspect]
     Active Substance: ALPRAZOLAM
     Dosage: 20 DF, SINGLE
     Route: 048
     Dates: start: 20150330
  5. THERALEN [Concomitant]
     Active Substance: TRIMEPRAZINE
  6. IKTORIVIL [Suspect]
     Active Substance: CLONAZEPAM
     Dosage: 35 DF, SINGLE
     Route: 048
     Dates: start: 20150330, end: 20150330
  7. PROPAVAN [Concomitant]
     Active Substance: PROPIOMAZINE
  8. ANTABUS [Concomitant]
     Active Substance: DISULFIRAM

REACTIONS (1)
  - Toxicity to various agents [Recovered/Resolved]

NARRATIVE: CASE EVENT DATE: 20150330
